FAERS Safety Report 20149414 (Version 2)
Quarter: 2022Q1

REPORT INFORMATION
  Report Type: Spontaneous
  Country: IN (occurrence: IN)
  Receive Date: 20211205
  Receipt Date: 20220124
  Transmission Date: 20220424
  Serious: Yes (Death, Hospitalization, Other)
  Sender: FDA-Public Use
  Company Number: IN-BoehringerIngelheim-2021-BI-140713

PATIENT
  Age: 66 Year
  Sex: Male

DRUGS (2)
  1. PRADAXA [Suspect]
     Active Substance: DABIGATRAN ETEXILATE MESYLATE
     Indication: Cerebrovascular accident
     Dates: start: 2015, end: 20211128
  2. PRADAXA [Suspect]
     Active Substance: DABIGATRAN ETEXILATE MESYLATE
     Indication: Atrial fibrillation

REACTIONS (5)
  - Death [Fatal]
  - Overdose [Not Recovered/Not Resolved]
  - Central nervous system haemorrhage [Not Recovered/Not Resolved]
  - Activated partial thromboplastin time abnormal [Not Recovered/Not Resolved]
  - Hypertension [Not Recovered/Not Resolved]

NARRATIVE: CASE EVENT DATE: 20210101
